FAERS Safety Report 17442780 (Version 1)
Quarter: 2020Q1

REPORT INFORMATION
  Report Type: Report from Study
  Country: CO (occurrence: CO)
  Receive Date: 20200220
  Receipt Date: 20200220
  Transmission Date: 20200409
  Serious: Yes (Other)
  Sender: FDA-Public Use
  Company Number: CO-ROCHE-2477840

PATIENT
  Sex: Male

DRUGS (3)
  1. CLEMASTINE [Concomitant]
     Active Substance: CLEMASTINE
  2. RITUXIMAB. [Suspect]
     Active Substance: RITUXIMAB
     Route: 065
  3. RITUXIMAB. [Suspect]
     Active Substance: RITUXIMAB
     Indication: PRODUCT USED FOR UNKNOWN INDICATION
     Route: 065

REACTIONS (8)
  - Lymphocyte count decreased [Unknown]
  - Lymphadenopathy [Unknown]
  - Hypersensitivity [Unknown]
  - Hypertension [Unknown]
  - Acute leukaemia [Unknown]
  - Toxic skin eruption [Unknown]
  - Acne [Unknown]
  - Immunodeficiency [Unknown]
